FAERS Safety Report 17735313 (Version 3)
Quarter: 2021Q2

REPORT INFORMATION
  Report Type: Spontaneous
  Country: US (occurrence: US)
  Receive Date: 20200501
  Receipt Date: 20210624
  Transmission Date: 20210716
  Serious: Yes (Other)
  Sender: FDA-Public Use
  Company Number: US-GILEAD-2020-0462743

PATIENT
  Age: 63 Year
  Sex: Male
  Weight: 96.15 kg

DRUGS (26)
  1. PHOSPHORUS [Concomitant]
     Active Substance: PHOSPHORUS
  2. PEPCID AC [Concomitant]
     Active Substance: FAMOTIDINE
  3. PAXIL CR [Concomitant]
     Active Substance: PAROXETINE HYDROCHLORIDE
  4. SPIRIVA [Concomitant]
     Active Substance: TIOTROPIUM BROMIDE MONOHYDRATE
  5. VANCOMYCIN [Concomitant]
     Active Substance: VANCOMYCIN
  6. KALETRA [Concomitant]
     Active Substance: LOPINAVIR\RITONAVIR
  7. TEMAZEPAM. [Concomitant]
     Active Substance: TEMAZEPAM
  8. ASPIRIN (E.C.) [Concomitant]
     Active Substance: ASPIRIN
  9. DICLOFENAC [Concomitant]
     Active Substance: DICLOFENAC
  10. NAPROXEN. [Concomitant]
     Active Substance: NAPROXEN
  11. IBUPROFEN. [Concomitant]
     Active Substance: IBUPROFEN
  12. RANITIDINE. [Concomitant]
     Active Substance: RANITIDINE
  13. ZIAGEN [Concomitant]
     Active Substance: ABACAVIR SULFATE
  14. ACYCLOVIR ABBOTT VIAL [Concomitant]
  15. PREDNISOLONE. [Concomitant]
     Active Substance: PREDNISOLONE
  16. PROZAC [Concomitant]
     Active Substance: FLUOXETINE HYDROCHLORIDE
  17. EMTRIVA [Concomitant]
     Active Substance: EMTRICITABINE
  18. ISENTRESS [Concomitant]
     Active Substance: RALTEGRAVIR POTASSIUM
  19. HYDROCODONE BITARTRATE AND ACETAMINOPHEN [Concomitant]
     Active Substance: ACETAMINOPHEN\HYDROCODONE BITARTRATE
  20. TRUVADA [Suspect]
     Active Substance: EMTRICITABINE\TENOFOVIR DISOPROXIL FUMARATE
     Dosage: UNK
     Route: 048
     Dates: start: 20051119, end: 20130127
  21. ZOLOFT [Concomitant]
     Active Substance: SERTRALINE HYDROCHLORIDE
  22. TRIUMEQ [Concomitant]
     Active Substance: ABACAVIR SULFATE\DOLUTEGRAVIR SODIUM\LAMIVUDINE
  23. TRUVADA [Suspect]
     Active Substance: EMTRICITABINE\TENOFOVIR DISOPROXIL FUMARATE
     Indication: HIV INFECTION
     Dosage: UNK
     Route: 048
     Dates: start: 200511, end: 201410
  24. TYLENOL [Concomitant]
     Active Substance: ACETAMINOPHEN
  25. FLUXIDE [Concomitant]
  26. SUSTIVA [Concomitant]
     Active Substance: EFAVIRENZ

REACTIONS (15)
  - Acute kidney injury [Unknown]
  - Loss of personal independence in daily activities [Not Recovered/Not Resolved]
  - Osteoporosis [Not Recovered/Not Resolved]
  - Renal failure [Not Recovered/Not Resolved]
  - Bone loss [Unknown]
  - Emotional distress [Not Recovered/Not Resolved]
  - Multiple fractures [Recovered/Resolved]
  - Pain [Not Recovered/Not Resolved]
  - Rib fracture [Unknown]
  - Vitamin D deficiency [Unknown]
  - Chronic kidney disease [Not Recovered/Not Resolved]
  - Bone density decreased [Unknown]
  - Osteonecrosis [Not Recovered/Not Resolved]
  - Osteopenia [Unknown]
  - Anxiety [Not Recovered/Not Resolved]

NARRATIVE: CASE EVENT DATE: 20111005
